FAERS Safety Report 7353306-0 (Version None)
Quarter: 2011Q1

REPORT INFORMATION
  Report Type: 
  Country: None (occurrence: None)
  Receive Date: 20110310
  Receipt Date: 20110310
  Transmission Date: 20110831
  Serious: No
  Sender: FDA-Public Use
  Company Number: None

PATIENT
  Sex: Female
  Weight: 43.9989 kg

DRUGS (1)
  1. DEXILANT 40 MG [Suspect]
     Indication: GASTROOESOPHAGEAL REFLUX DISEASE
     Dosage: 40 MG/DAY 1X PO
     Route: 048
     Dates: start: 20101209, end: 20110208

REACTIONS (3)
  - SLEEP DISORDER [None]
  - INSOMNIA [None]
  - DRUG EFFECT DECREASED [None]
